FAERS Safety Report 8851857 (Version 2)
Quarter: 2013Q1

REPORT INFORMATION
  Report Type: Spontaneous
  Country: NZ (occurrence: None)
  Receive Date: 20121017
  Receipt Date: 20121205
  Transmission Date: 20140127
  Serious: Yes (Other)
  Sender: FDA-Public Use
  Company Number: COL_12455_2012

PATIENT
  Age: 63 Year
  Sex: Female

DRUGS (6)
  1. SODIUM FLUORIDE\TRICLOSAN [Suspect]
     Indication: DENTAL CARIES
     Dosage: (NORMAL AMOUNT/ONCE/ ORAL)
     Route: 048
     Dates: start: 20120901, end: 20120901
  2. SODIUM FLUORIDE\TRICLOSAN [Suspect]
     Indication: DENTAL PLAQUE
     Dosage: (NORMAL AMOUNT/ONCE/ ORAL)
     Route: 048
     Dates: start: 20120901, end: 20120901
  3. SODIUM FLUORIDE\TRICLOSAN [Suspect]
     Indication: GINGIVITIS
     Dosage: (NORMAL AMOUNT/ONCE/ ORAL)
     Route: 048
     Dates: start: 20120901, end: 20120901
  4. ANTI-ASTHMATICS [Concomitant]
  5. COLGATE 360 BATTERY TOOTHBRUSH [Concomitant]
  6. COLGATE MANUAL TOOTHBRUSH [Concomitant]

REACTIONS (13)
  - Dyspnoea [None]
  - Pain in extremity [None]
  - Chest pain [None]
  - Oral discomfort [None]
  - Oral discomfort [None]
  - Palpitations [None]
  - Tooth discolouration [None]
  - Enamel anomaly [None]
  - Gingival swelling [None]
  - Lip swelling [None]
  - Glossodynia [None]
  - Paraesthesia oral [None]
  - Gingival pain [None]
